FAERS Safety Report 5930590-9 (Version None)
Quarter: 2008Q4

REPORT INFORMATION
  Report Type: 
  Country: None (occurrence: None)
  Receive Date: 20081027
  Receipt Date: 20081017
  Transmission Date: 20090506
  Serious: Yes (Hospitalization)
  Sender: FDA-Public Use
  Company Number: BR-BAYER-200813154LA

PATIENT
  Age: 45 Year
  Sex: Male

DRUGS (2)
  1. BETAFERON [Suspect]
     Indication: MULTIPLE SCLEROSIS
     Dosage: UNIT DOSE: 8 MIU
     Route: 058
     Dates: start: 19951213
  2. BETAFERON [Suspect]
     Dosage: UNIT DOSE: 8 MIU
     Route: 058

REACTIONS (6)
  - ANOREXIA [None]
  - ARTHRALGIA [None]
  - BALANCE DISORDER [None]
  - FALL [None]
  - TRAUMATIC FRACTURE [None]
  - WEIGHT DECREASED [None]
